FAERS Safety Report 9617739 (Version 1)
Quarter: 2013Q4

REPORT INFORMATION
  Report Type: Spontaneous
  Country: NL (occurrence: NL)
  Receive Date: 20131011
  Receipt Date: 20131011
  Transmission Date: 20140711
  Serious: Yes (Other)
  Sender: FDA-Public Use
  Company Number: PHHY2013NL112532

PATIENT
  Age: 73 Year
  Sex: Female

DRUGS (7)
  1. CLOMIPRAMINE [Suspect]
     Dosage: 175 MG, DAILY, }6MONTHS
  2. PANTOPRAZOLE [Suspect]
  3. METFORMIN [Suspect]
  4. LORAZEPAM [Suspect]
  5. ENALAPRIL [Suspect]
  6. FLUPENTIXOL [Suspect]
  7. HYDROCHLOORTHIAZIDE [Concomitant]

REACTIONS (2)
  - Hyponatraemia [Unknown]
  - Hypovolaemia [Unknown]
